FAERS Safety Report 20607958 (Version 2)
Quarter: 2022Q2

REPORT INFORMATION
  Report Type: Spontaneous
  Country: US (occurrence: US)
  Receive Date: 20220317
  Receipt Date: 20220505
  Transmission Date: 20220721
  Serious: No
  Sender: FDA-Public Use
  Company Number: US-SA-SAC20220311000866

PATIENT
  Sex: Male

DRUGS (1)
  1. DUPIXENT [Suspect]
     Active Substance: DUPILUMAB
     Indication: Asthma
     Dosage: UNK, QOW
     Route: 058
     Dates: start: 202002, end: 202202

REACTIONS (4)
  - Fatigue [Not Recovered/Not Resolved]
  - Lung disorder [Unknown]
  - Arthralgia [Unknown]
  - Drug ineffective [Unknown]
